FAERS Safety Report 8423271-3 (Version None)
Quarter: 2012Q2

REPORT INFORMATION
  Report Type: 
  Country: None (occurrence: None)
  Receive Date: 20120608
  Receipt Date: 20120608
  Transmission Date: 20120825
  Serious: Yes (Death, Other)
  Sender: FDA-Public Use
  Company Number: US-JNJFOC-20120603222

PATIENT

DRUGS (10)
  1. CARFILZOMIB [Suspect]
     Indication: MULTIPLE MYELOMA
     Dosage: DAYS 8, 9, 15, 16 EVERY 28 DAYS
     Route: 042
  2. MELPHALAN HYDROCHLORIDE [Suspect]
     Indication: MULTIPLE MYELOMA
     Route: 065
  3. CISPLATIN [Suspect]
     Indication: MULTIPLE MYELOMA
     Dosage: (3-5 MG/M^2/DAY) 16 DAYS CONTINUOUS INFUSION
     Route: 042
  4. DEXAMETHASONE [Suspect]
     Indication: MULTIPLE MYELOMA
     Dosage: IN THE ABSENCE OF AT LEAST PARTIAL RESPONSE (PR), DEX INCREASED TO 20 MG
     Route: 065
  5. THALIDOMIDE [Suspect]
     Indication: MULTIPLE MYELOMA
     Route: 065
  6. BORTEZOMIB [Suspect]
     Indication: MULTIPLE MYELOMA
     Route: 065
  7. LENALIDOMIDE [Suspect]
     Indication: MULTIPLE MYELOMA
     Route: 065
  8. STEROIDS NOS [Suspect]
     Indication: MULTIPLE MYELOMA
     Route: 065
  9. DOXORUBICIN HCL [Suspect]
     Indication: MULTIPLE MYELOMA
     Dosage: 1.5 TO 3 MG/M^2/DAY
     Route: 042
  10. CARFILZOMIB [Suspect]
     Dosage: DAY 1, 2
     Route: 042

REACTIONS (10)
  - ANAEMIA [None]
  - TOXICITY TO VARIOUS AGENTS [None]
  - LEUKOPENIA [None]
  - HYPOPHOSPHATAEMIA [None]
  - NEUROPATHY PERIPHERAL [None]
  - THROMBOCYTOPENIA [None]
  - FATIGUE [None]
  - MULTIPLE MYELOMA [None]
  - HYPOKALAEMIA [None]
  - DEATH [None]
